FAERS Safety Report 5281385-3 (Version None)
Quarter: 2007Q1

REPORT INFORMATION
  Report Type: 
  Country: None (occurrence: None)
  Receive Date: 20070330
  Receipt Date: 20070320
  Transmission Date: 20070707
  Serious: Yes (Disabling)
  Sender: FDA-Public Use
  Company Number: GB-BAYER-200710326BNE

PATIENT
  Age: 21 Year
  Sex: Male

DRUGS (1)
  1. CIPRO [Suspect]
     Indication: GASTROINTESTINAL INFECTION
     Dosage: TOTAL DAILY DOSE: 1000 MG
     Route: 048

REACTIONS (5)
  - ARTHRALGIA [None]
  - C-REACTIVE PROTEIN INCREASED [None]
  - JOINT STIFFNESS [None]
  - JOINT SWELLING [None]
  - RED BLOOD CELL SEDIMENTATION RATE INCREASED [None]
